FAERS Safety Report 6821727-8 (Version None)
Quarter: 2010Q3

REPORT INFORMATION
  Report Type: 
  Country: None (occurrence: None)
  Receive Date: 20100702
  Receipt Date: 20100623
  Transmission Date: 20110219
  Serious: Yes (Other)
  Sender: FDA-Public Use
  Company Number: 2010SCPR001188

PATIENT
  Age: 65 Year
  Sex: Male

DRUGS (3)
  1. METHYLPREDNISOLONE [Suspect]
     Indication: CHRONIC LYMPHOCYTIC LEUKAEMIA
  2. ALEMTUZUMAB (ALEMTUZUMAB) UNKNOWN [Suspect]
     Indication: CHRONIC LYMPHOCYTIC LEUKAEMIA
  3. CICLOSPORIN [Concomitant]

REACTIONS (8)
  - ASPERGILLOSIS [None]
  - CEREBRAL ASPERGILLOSIS [None]
  - EYE ABSCESS [None]
  - EYE INFECTION FUNGAL [None]
  - THROMBOCYTOPENIA [None]
  - UVEITIS [None]
  - VISUAL ACUITY REDUCED [None]
  - VITREOUS HAEMORRHAGE [None]
